FAERS Safety Report 5884364-8 (Version None)
Quarter: 2008Q3

REPORT INFORMATION
  Report Type: 
  Country: None (occurrence: None)
  Receive Date: 20080915
  Receipt Date: 20080903
  Transmission Date: 20090109
  Serious: Yes (Other)
  Sender: FDA-Public Use
  Company Number: US-PFIZER INC-2008055504

PATIENT
  Sex: Female

DRUGS (1)
  1. DILANTIN [Suspect]
     Indication: CONVULSION
     Dates: start: 19580101

REACTIONS (6)
  - BRAIN INJURY [None]
  - CONVULSION [None]
  - DIPLOPIA [None]
  - DRUG INEFFECTIVE [None]
  - IMPAIRED DRIVING ABILITY [None]
  - MEMORY IMPAIRMENT [None]
